FAERS Safety Report 4390285-2 (Version None)
Quarter: 2004Q3

REPORT INFORMATION
  Report Type: 
  Country: None (occurrence: None)
  Receive Date: 20040706
  Receipt Date: 20040628
  Transmission Date: 20050211
  Serious: Yes (Other)
  Sender: FDA-Public Use
  Company Number: US-ROCHE-372455

PATIENT
  Age: 41 Year
  Sex: Female

DRUGS (6)
  1. PEGASYS [Suspect]
     Indication: HEPATITIS C
     Dosage: ROUTE OF ADMINISTRATION REPORTED AS INJECTION.
     Route: 050
     Dates: start: 20040416
  2. DEPAKOTE [Suspect]
     Indication: BIPOLAR DISORDER
     Route: 048
  3. SERTRALINE HYDROCHLORIDE [Concomitant]
     Indication: BIPOLAR DISORDER
     Route: 048
  4. BUSPIRONE HCL [Concomitant]
     Indication: BIPOLAR DISORDER
     Route: 048
  5. LACTULOSE [Concomitant]
     Route: 048
     Dates: start: 20040615
  6. RIBAVIRIN [Concomitant]
     Indication: HEPATITIS C
     Route: 048
     Dates: start: 20040416

REACTIONS (3)
  - HAEMOGLOBIN DECREASED [None]
  - PLATELET COUNT DECREASED [None]
  - VAGINAL HAEMORRHAGE [None]
